FAERS Safety Report 5774712-1 (Version None)
Quarter: 2008Q2

REPORT INFORMATION
  Report Type: 
  Country: None (occurrence: None)
  Receive Date: 20080617
  Receipt Date: 20080612
  Transmission Date: 20081010
  Serious: No
  Sender: FDA-Public Use
  Company Number: US-BAYER-200825414NA

PATIENT
  Age: 33 Year
  Sex: Female
  Weight: 59 kg

DRUGS (1)
  1. YAZ [Suspect]
     Indication: CONTRACEPTION

REACTIONS (5)
  - ALOPECIA [None]
  - HALO VISION [None]
  - HYPOAESTHESIA [None]
  - MYALGIA [None]
  - UNEVALUABLE EVENT [None]
